FAERS Safety Report 14742515 (Version 1)
Quarter: 2018Q2

REPORT INFORMATION
  Report Type: Spontaneous
  Country: US (occurrence: US)
  Receive Date: 20180410
  Receipt Date: 20180410
  Transmission Date: 20180711
  Serious: Yes (Life-Threatening)
  Sender: FDA-Public Use
  Company Number: US-LPDUSPRD-20180517

PATIENT
  Age: 38 Year
  Sex: Female
  Weight: 129.4 kg

DRUGS (2)
  1. VENOFER [Suspect]
     Active Substance: IRON SUCROSE
     Dosage: 100 MG
     Route: 065
     Dates: start: 20180316
  2. MIRCERA [Suspect]
     Active Substance: METHOXY POLYETHYLENE GLYCOL-EPOETIN BETA
     Dosage: 75 MCG 1 IN 2 WEEK
     Route: 040
     Dates: start: 20180316, end: 20180316

REACTIONS (7)
  - Cyanosis [Unknown]
  - Depressed level of consciousness [Unknown]
  - Blood pressure increased [Unknown]
  - Dyspnoea [Unknown]
  - Vomiting [Unknown]
  - Malaise [Unknown]
  - Back pain [Unknown]

NARRATIVE: CASE EVENT DATE: 20180316
